FAERS Safety Report 6214807-1 (Version None)
Quarter: 2009Q2

REPORT INFORMATION
  Report Type: 
  Country: None (occurrence: None)
  Receive Date: 20090604
  Receipt Date: 20090527
  Transmission Date: 20091009
  Serious: Yes (Death)
  Sender: FDA-Public Use
  Company Number: B0577149A

PATIENT
  Age: 86 Year
  Sex: Male

DRUGS (10)
  1. ZYLORIC [Suspect]
     Indication: GOUT
     Dosage: 300MG PER DAY
     Route: 048
     Dates: start: 20090115, end: 20090130
  2. REQUIP [Suspect]
     Indication: DRUG USE FOR UNKNOWN INDICATION
     Route: 048
     Dates: start: 20090101
  3. HALOPERIDOL [Concomitant]
     Route: 048
     Dates: start: 20090130
  4. TRAMADOL HCL [Concomitant]
     Route: 048
     Dates: start: 20090101
  5. ADIRO [Concomitant]
     Route: 048
     Dates: start: 20090101
  6. PANTOPRAZOLE SODIUM [Concomitant]
     Route: 048
     Dates: start: 20090101
  7. ARICEPT [Concomitant]
  8. ATACAND [Concomitant]
     Dates: start: 20090101
  9. ENOXAPARIN SODIUM [Concomitant]
     Route: 058
     Dates: start: 20090101
  10. LIPEMOL [Concomitant]
     Route: 048
     Dates: start: 20090101

REACTIONS (3)
  - BLOOD CREATININE INCREASED [None]
  - TOXIC EPIDERMAL NECROLYSIS [None]
  - UREA URINE INCREASED [None]
